FAERS Safety Report 5247610-X (Version None)
Quarter: 2007Q1

REPORT INFORMATION
  Report Type: 
  Country: None (occurrence: None)
  Receive Date: 20070220
  Receipt Date: 20070206
  Transmission Date: 20070707
  Serious: Yes (Other)
  Sender: FDA-Public Use
  Company Number: 236206

PATIENT
  Age: 43 Year
  Sex: Female

DRUGS (6)
  1. AVASTIN [Suspect]
     Indication: BREAST CANCER
     Dosage: 818 MG, UNK, UNK
     Dates: start: 20061102, end: 20070112
  2. TAXOL [Suspect]
     Indication: BREAST CANCER
     Dosage: 327 MG, UNK, UNK
     Dates: start: 20070104, end: 20070112
  3. DOXORUBICIN HCL [Suspect]
     Indication: BREAST CANCER
     Dosage: 112 MG, UNK, UNK
     Dates: start: 20061102
  4. CYCLOPHOSPHAMIDE [Suspect]
     Indication: BREAST CANCER
     Dosage: 1120 MG, UNK, UNK
     Dates: start: 20061102
  5. NEULASTA [Concomitant]
  6. MEDROL [Concomitant]

REACTIONS (4)
  - BLOOD TEST ABNORMAL [None]
  - HYPOAESTHESIA [None]
  - MUSCLE SPASMS [None]
  - MYALGIA [None]
